FAERS Safety Report 23827287 (Version 9)
Quarter: 2024Q4

REPORT INFORMATION
  Report Type: Spontaneous
  Country: US (occurrence: US)
  Receive Date: 20240507
  Receipt Date: 20241115
  Transmission Date: 20250114
  Serious: No
  Sender: PFIZER
  Company Number: US-PFIZER INC-202400098969

PATIENT
  Age: 5 Year
  Sex: Female
  Weight: 19.05 kg

DRUGS (11)
  1. GENOTROPIN [Suspect]
     Active Substance: SOMATROPIN
     Indication: Hypopituitarism
     Dosage: 0.4 MG, DAILY
     Dates: start: 2018
  2. GENOTROPIN [Suspect]
     Active Substance: SOMATROPIN
     Dosage: MONDAY, WEDNESDAY AND FRIDAY GETS 0.6MG AND OTHER 4 DAYS SHE GETS 0.4MG 0.6 MG 3D/WK
     Route: 058
  3. GENOTROPIN [Suspect]
     Active Substance: SOMATROPIN
     Dosage: MONDAY, WEDNESDAY AND FRIDAY GETS 0.6MG AND OTHER 4 DAYS SHE GETS 0.4MG 0.4 MG 4D/WK
     Route: 058
  4. DIETARY SUPPLEMENT [Concomitant]
     Active Substance: DIETARY SUPPLEMENT
     Indication: Constipation
     Dosage: 1.5 DAILY ORALLY
     Route: 048
     Dates: start: 20240401
  5. FAMOTIDINE [Concomitant]
     Active Substance: FAMOTIDINE
     Indication: Gastrooesophageal reflux disease
     Dosage: 40MG IN 5ML SUSPENSION. TAKES 1ML NIGHTLY
     Route: 048
     Dates: start: 202402
  6. LEVOTHYROXINE [Concomitant]
     Active Substance: LEVOTHYROXINE
     Indication: Hormone level abnormal
     Dosage: 75MCG. TAKES HALF TABLET EVERY MORNING
     Route: 048
  7. OXCARBAZEPINE [Concomitant]
     Active Substance: OXCARBAZEPINE
     Indication: Seizure prophylaxis
     Dosage: 150MG. TAKES 1 TABLET TWICE A DAY.
     Route: 048
     Dates: start: 20240218
  8. HYDROCORTISONE [Concomitant]
     Active Substance: HYDROCORTISONE
     Indication: Hormone level abnormal
     Dosage: 5MG. HALF TABLET EVERY MORNING AND HALF TABLET EVERY AFTERNOON AND QUARTER TABLET EVERY NIGHT.
     Route: 048
  9. FEXOFENADINE [Concomitant]
     Active Substance: FEXOFENADINE HYDROCHLORIDE
     Indication: Hypersensitivity
     Dosage: 30MG IN 5ML. TAKES 5ML IN THE MORNING ORALLY.
     Route: 048
     Dates: start: 202305
  10. MELATONIN [Concomitant]
     Active Substance: MELATONIN
     Indication: Insomnia
     Dosage: 2MG. TAKES 2 TABLETS AT NIGHT ORALLY
     Route: 048
  11. LEVOCETIRIZINE [Concomitant]
     Active Substance: LEVOCETIRIZINE
     Indication: Hypersensitivity
     Dosage: TAKES HALF TABLET NIGHTLY ORALLY
     Route: 048

REACTIONS (3)
  - Device use error [Unknown]
  - Device breakage [Unknown]
  - Drug dose omission by device [Unknown]

NARRATIVE: CASE EVENT DATE: 20240401
